FAERS Safety Report 9298630 (Version 2)
Quarter: 2013Q2

REPORT INFORMATION
  Report Type: Spontaneous
  Country: US (occurrence: US)
  Receive Date: 20130520
  Receipt Date: 20130611
  Transmission Date: 20140414
  Serious: Yes (Other)
  Sender: FDA-Public Use
  Company Number: US-PFIZER INC-2013154267

PATIENT
  Age: 43 Year
  Sex: Female
  Weight: 104 kg

DRUGS (5)
  1. GABAPENTIN [Suspect]
     Indication: MULTIPLE SCLEROSIS
     Dosage: 1600 MG, 1X/DAY (TWO 400MG IN THE DAY AND TWO AT NIGHT)
     Dates: start: 2013
  2. LYRICA [Suspect]
     Indication: MULTIPLE SCLEROSIS
     Dosage: 300 MG, 1X/DAY
  3. LYRICA [Suspect]
     Dosage: 225 MG, 1X/DAY
  4. FLUOXETINE [Concomitant]
     Indication: PREMENSTRUAL DYSPHORIC DISORDER
     Dosage: UNK
  5. OXYBUTYNIN [Concomitant]
     Indication: BLADDER DISORDER
     Dosage: UNK

REACTIONS (3)
  - Off label use [Unknown]
  - Abasia [Recovered/Resolved]
  - Drug ineffective for unapproved indication [Unknown]
